FAERS Safety Report 5147836-X (Version None)
Quarter: 2006Q4

REPORT INFORMATION
  Report Type: 
  Country: None (occurrence: None)
  Receive Date: 20061110
  Receipt Date: 20060419
  Transmission Date: 20070319
  Serious: Yes (Hospitalization)
  Sender: FDA-Public Use
  Company Number: FR-BAYER-200610398BFR

PATIENT
  Age: 75 Year
  Sex: Male
  Weight: 74 kg

DRUGS (23)
  1. SORAFENIB [Suspect]
     Indication: METASTATIC RENAL CELL CARCINOMA
     Dosage: TOTAL DAILY DOSE: 800 MG  UNIT DOSE: 200 MG
     Route: 048
     Dates: start: 20050820, end: 20060324
  2. BIPRETERAX [Concomitant]
     Indication: HYPERTENSION
     Dates: start: 19950101
  3. FLODIL LP [Concomitant]
     Indication: HYPERTENSION
     Dates: start: 19950101
  4. SYMBICORT [Concomitant]
     Indication: CHRONIC OBSTRUCTIVE PULMONARY DISEASE
     Route: 055
     Dates: start: 20000101, end: 20060201
  5. INIPOMP [Concomitant]
     Indication: ABDOMINAL PAIN UPPER
     Dates: start: 19950101, end: 20060105
  6. EFFERALGAN [Concomitant]
     Indication: ARTHRALGIA
     Dates: start: 19850101
  7. PRIMALAN [Concomitant]
     Indication: PROPHYLAXIS
     Dates: start: 20000101, end: 20060328
  8. ZOLPIDEM TARTRATE [Concomitant]
     Indication: INSOMNIA
     Dates: start: 20041101
  9. DIPROSALIC [Concomitant]
     Indication: PSORIASIS
     Route: 003
     Dates: start: 19950101
  10. LEXOMIL [Concomitant]
     Indication: DEPRESSION
     Route: 048
     Dates: start: 20041101
  11. ALLOPURINOL [Concomitant]
     Indication: PROPHYLAXIS
  12. IMODIUM [Concomitant]
     Indication: DIARRHOEA
     Dates: start: 20051009
  13. POLYSILANE [Concomitant]
     Indication: ABDOMINAL PAIN UPPER
     Dates: start: 19950101
  14. OMEPRAZOLE [Concomitant]
     Indication: ABDOMINAL PAIN UPPER
     Route: 048
     Dates: start: 20060105
  15. ANAFRANIL [Concomitant]
     Indication: DEPRESSION
     Dates: start: 20051219, end: 20060131
  16. ACTAPULGITE [Concomitant]
     Indication: DIARRHOEA
     Dates: start: 20060202
  17. VOGALENE [Concomitant]
     Indication: NAUSEA
     Dates: start: 20060208
  18. ZOLOFT [Concomitant]
     Indication: DEPRESSION
     Dates: start: 20060203
  19. ATARAX [Concomitant]
     Indication: HYPERSENSITIVITY
     Route: 048
     Dates: start: 20051213, end: 20051213
  20. ATARAX [Concomitant]
     Route: 048
     Dates: start: 20051203, end: 20051203
  21. CELESTONE [Concomitant]
     Indication: HYPERSENSITIVITY
     Dates: start: 20051203, end: 20051213
  22. TELFAST [Concomitant]
     Indication: HYPERSENSITIVITY
     Dates: start: 20051203, end: 20051213
  23. SEROPLEX [Concomitant]
     Indication: DEPRESSION
     Dates: start: 20050501, end: 20051220

REACTIONS (2)
  - DIARRHOEA [None]
  - GENERAL PHYSICAL HEALTH DETERIORATION [None]
